FAERS Safety Report 9487641 (Version 2)
Quarter: 2013Q3

REPORT INFORMATION
  Report Type: Spontaneous
  Country: JP (occurrence: JP)
  Receive Date: 20130829
  Receipt Date: 20130829
  Transmission Date: 20140515
  Serious: No
  Sender: FDA-Public Use
  Company Number: JP-ASTRAZENECA-2013SE47935

PATIENT
  Age: 22959 Day
  Sex: Female
  Weight: 53 kg

DRUGS (1)
  1. FASLODEX [Suspect]
     Indication: BREAST CANCER
     Route: 030
     Dates: start: 20130607, end: 20130607

REACTIONS (2)
  - Malaise [Recovering/Resolving]
  - Nausea [Recovered/Resolved]
